FAERS Safety Report 13144320 (Version 2)
Quarter: 2017Q1

REPORT INFORMATION
  Report Type: Spontaneous
  Country: US (occurrence: US)
  Receive Date: 20170124
  Receipt Date: 20170209
  Transmission Date: 20170428
  Serious: No
  Sender: FDA-Public Use
  Company Number: US-ASTRAZENECA-2016SF26890

PATIENT
  Age: 831 Month
  Sex: Male
  Weight: 70.3 kg

DRUGS (3)
  1. METFORMIN [Concomitant]
     Active Substance: METFORMIN HYDROCHLORIDE
     Indication: TYPE 2 DIABETES MELLITUS
     Dosage: 2 AND A HALF TABLETS A DAY, TWICE A DAY, FOR A TOTAL OF 2500 MG A DAY
     Route: 048
  2. ASPIRIN. [Concomitant]
     Active Substance: ASPIRIN
     Route: 048
  3. BYDUREON [Suspect]
     Active Substance: EXENATIDE
     Indication: TYPE 2 DIABETES MELLITUS
     Route: 058

REACTIONS (5)
  - Injection site mass [Unknown]
  - Intentional device misuse [Unknown]
  - Injection site haematoma [Recovered/Resolved]
  - Device malfunction [Unknown]
  - Injection site nodule [Unknown]

NARRATIVE: CASE EVENT DATE: 201611
